FAERS Safety Report 22747406 (Version 2)
Quarter: 2023Q4

REPORT INFORMATION
  Report Type: Spontaneous
  Country: US (occurrence: US)
  Receive Date: 20230725
  Receipt Date: 20231005
  Transmission Date: 20240109
  Serious: No
  Sender: FDA-Public Use
  Company Number: US-BRISTOL-MYERS SQUIBB COMPANY-2023-103393

PATIENT
  Sex: Male

DRUGS (1)
  1. LUSPATERCEPT [Suspect]
     Active Substance: LUSPATERCEPT
     Indication: Anaemia of malignant disease
     Route: 058

REACTIONS (3)
  - Rash [Recovering/Resolving]
  - Fatigue [Recovered/Resolved]
  - Arthropod bite [Recovered/Resolved]
